FAERS Safety Report 4843585-3 (Version None)
Quarter: 2005Q4

REPORT INFORMATION
  Report Type: 
  Country: None (occurrence: None)
  Receive Date: 20051202
  Receipt Date: 20050907
  Transmission Date: 20060501
  Serious: Yes (Hospitalization)
  Sender: FDA-Public Use
  Company Number: JP-BOEHRINGER INGELHEIM PHARMACEUTICALS, INC.-2005-BP-15757NB

PATIENT
  Sex: Male
  Weight: 54 kg

DRUGS (10)
  1. SPIRIVA [Suspect]
     Indication: EMPHYSEMA
     Route: 055
     Dates: start: 20050622, end: 20050828
  2. CIBENOL [Suspect]
     Indication: SUPRAVENTRICULAR TACHYCARDIA
     Route: 048
     Dates: start: 20050826
  3. SOLANAX [Concomitant]
     Route: 048
     Dates: start: 20030416, end: 20050914
  4. NU-LOTAN [Concomitant]
     Route: 048
     Dates: start: 20030409
  5. RHYTHMY [Concomitant]
     Route: 048
     Dates: start: 20030328
  6. DEPAS [Concomitant]
     Route: 048
     Dates: start: 20050330, end: 20050914
  7. THEOLONG [Concomitant]
     Route: 048
     Dates: start: 20030328
  8. MEILAX [Concomitant]
     Route: 048
     Dates: start: 20030416
  9. ASPHANATE [Concomitant]
     Route: 048
     Dates: start: 20050817
  10. PRAVASTATIN SODIUM [Concomitant]
     Route: 048
     Dates: start: 20040401

REACTIONS (1)
  - RESPIRATORY FAILURE [None]
